FAERS Safety Report 26117757 (Version 1)
Quarter: 2025Q4

REPORT INFORMATION
  Report Type: Spontaneous
  Country: US (occurrence: US)
  Receive Date: 20251203
  Receipt Date: 20251203
  Transmission Date: 20260118
  Serious: Yes (Other)
  Sender: ABBVIE
  Company Number: US-ABBVIE-6572820

PATIENT
  Age: 70 Year
  Sex: Male

DRUGS (2)
  1. REFRESH OPTIVE ADVANCED [Suspect]
     Active Substance: CARBOXYMETHYLCELLULOSE SODIUM\GLYCERIN\POLYSORBATE 80
     Indication: Eye lubrication therapy
     Dosage: PRESERVATIVE FREE, PATIENT ROUTE OF ADMINISTRATION: OPHTHALMIC
     Route: 047
  2. REFRESH TEARS [Suspect]
     Active Substance: CARBOXYMETHYLCELLULOSE SODIUM
     Indication: Product used for unknown indication
     Dosage: PATIENT ROUTE OF ADMINISTRATION: OPHTHALMIC
     Route: 047

REACTIONS (4)
  - Prostate cancer [Unknown]
  - Ocular hyperaemia [Unknown]
  - Off label use [Unknown]
  - Liquid product physical issue [Unknown]

NARRATIVE: CASE EVENT DATE: 20250101
